FAERS Safety Report 24570375 (Version 3)
Quarter: 2025Q1

REPORT INFORMATION
  Report Type: Spontaneous
  Country: US (occurrence: US)
  Receive Date: 20241031
  Receipt Date: 20250210
  Transmission Date: 20250408
  Serious: No
  Sender: KARYOPHARM THERAPEUTICS
  Company Number: US-KARYOPHARM-2024KPT001728

PATIENT

DRUGS (4)
  1. XPOVIO [Suspect]
     Active Substance: SELINEXOR
     Indication: Plasma cell myeloma refractory
     Dosage: 40 MG, WEEKLY
     Route: 048
     Dates: start: 20240902
  2. GABAPENTIN [Concomitant]
     Active Substance: GABAPENTIN
  3. NORCO [Concomitant]
     Active Substance: ACETAMINOPHEN\HYDROCODONE BITARTRATE
  4. POMALYST [Concomitant]
     Active Substance: POMALIDOMIDE

REACTIONS (4)
  - Oropharyngeal pain [Unknown]
  - Rash [Unknown]
  - Paraesthesia [Unknown]
  - Product dose omission issue [Unknown]

NARRATIVE: CASE EVENT DATE: 20241001
